FAERS Safety Report 17980538 (Version 1)
Quarter: 2020Q3

REPORT INFORMATION
  Report Type: Report from Study
  Country: FR (occurrence: FR)
  Receive Date: 20200704
  Receipt Date: 20200704
  Transmission Date: 20201103
  Serious: Yes (Death, Other)
  Sender: FDA-Public Use
  Company Number: FR-SUN PHARMACEUTICAL INDUSTRIES LTD-2020R1-252286

PATIENT
  Age: 62 Year

DRUGS (6)
  1. CARBOPLATIN. [Suspect]
     Active Substance: CARBOPLATIN
     Indication: PHARYNGEAL CANCER
     Dosage: UNK
     Route: 042
  2. CETUXIMAB. [Suspect]
     Active Substance: CETUXIMAB
     Indication: PHARYNGEAL CANCER
     Dosage: UNK
     Route: 042
  3. CARBOPLATIN. [Suspect]
     Active Substance: CARBOPLATIN
     Indication: METASTASES TO BONE
  4. 5?FU [Suspect]
     Active Substance: FLUOROURACIL
     Indication: PHARYNGEAL CANCER
     Dosage: UNK
     Route: 042
  5. CETUXIMAB. [Suspect]
     Active Substance: CETUXIMAB
     Indication: METASTASES TO BONE
  6. 5?FU [Suspect]
     Active Substance: FLUOROURACIL
     Indication: METASTASES TO BONE

REACTIONS (1)
  - Febrile neutropenia [Fatal]
